FAERS Safety Report 13572256 (Version 1)
Quarter: 2017Q2

REPORT INFORMATION
  Report Type: Spontaneous
  Country: US (occurrence: US)
  Receive Date: 20170523
  Receipt Date: 20170523
  Transmission Date: 20170830
  Serious: No
  Sender: FDA-Public Use
  Company Number: None

PATIENT
  Age: 62 Year
  Sex: Male
  Weight: 108.05 kg

DRUGS (2)
  1. HYDROCODONE 5-325MG [Suspect]
     Active Substance: HYDROCODONE
     Indication: ARTHRALGIA
     Dosage: 5/325
     Route: 048
     Dates: start: 20170516
  2. HYDROCODONE 5-325MG [Suspect]
     Active Substance: HYDROCODONE
     Indication: BACK PAIN
     Dosage: 5/325
     Route: 048
     Dates: start: 20170516

REACTIONS (1)
  - Drug ineffective [None]

NARRATIVE: CASE EVENT DATE: 201705
